FAERS Safety Report 5344114-0 (Version None)
Quarter: 2007Q2

REPORT INFORMATION
  Report Type: 
  Country: None (occurrence: None)
  Receive Date: 20070604
  Receipt Date: 20070521
  Transmission Date: 20071010
  Serious: Yes (Other)
  Sender: FDA-Public Use
  Company Number: PHBS2007GR08768

PATIENT
  Age: 30 Year
  Sex: Male

DRUGS (4)
  1. CLOZAPINE [Suspect]
     Indication: SCHIZOPHRENIA, PARANOID TYPE
     Dosage: 150 MG/D
     Route: 065
  2. CLOZAPINE [Suspect]
     Dosage: 300 MG/D
     Route: 065
  3. CLOZAPINE [Suspect]
     Dosage: 550 MG/D
     Route: 065
  4. RIFAMPICIN [Suspect]
     Indication: PULMONARY TUBERCULOSIS
     Dosage: 600 MG/D
     Route: 065

REACTIONS (8)
  - BODY TEMPERATURE INCREASED [None]
  - DRUG INTERACTION [None]
  - LEUKOCYTOSIS [None]
  - PRODUCTIVE COUGH [None]
  - PSYCHOTIC DISORDER [None]
  - PULMONARY TUBERCULOSIS [None]
  - SALIVARY HYPERSECRETION [None]
  - SEDATION [None]
